FAERS Safety Report 15999920 (Version 2)
Quarter: 2020Q4

REPORT INFORMATION
  Report Type: Spontaneous
  Country: DE (occurrence: DE)
  Receive Date: 20190225
  Receipt Date: 20201113
  Transmission Date: 20210113
  Serious: Yes (Hospitalization)
  Sender: FDA-Public Use
  Company Number: PHHY2019DE041055

PATIENT
  Age: 55 Year
  Sex: Female
  Weight: 53 kg

DRUGS (6)
  1. AVASTIN [Suspect]
     Active Substance: BEVACIZUMAB
     Indication: OVARIAN CANCER
     Dosage: 795 MG, Q3W
     Route: 042
     Dates: start: 20131114, end: 20131203
  2. TAVEGIL [Concomitant]
     Active Substance: CLEMASTINE FUMARATE
     Indication: PROPHYLAXIS
     Dosage: 1 DF, Q3W
     Route: 042
  3. CARBOPLATIN. [Suspect]
     Active Substance: CARBOPLATIN
     Indication: OVARIAN CANCER
     Dosage: 522 MG, Q3W (MOST RECENT DOSE PRIOR TO SAE WAS GIVEN ON 03 DEC 2013
     Route: 042
     Dates: start: 20131113, end: 20131203
  4. PACLITAXEL. [Suspect]
     Active Substance: PACLITAXEL
     Indication: OVARIAN CANCER
     Dosage: 260 MG, Q3W
     Route: 042
     Dates: start: 20131113, end: 20131203
  5. ONDANSETRON [Concomitant]
     Active Substance: ONDANSETRON
     Indication: PROPHYLAXIS
     Dosage: 8 MG, Q3W
     Route: 048
     Dates: start: 20131113, end: 20131205
  6. DEXAMETHASONE. [Concomitant]
     Active Substance: DEXAMETHASONE
     Indication: PROPHYLAXIS
     Dosage: 20 MG, Q3W
     Route: 042

REACTIONS (5)
  - Intestinal perforation [Recovered/Resolved]
  - Gastric perforation [Recovered/Resolved]
  - Gastric ulcer [Recovered/Resolved]
  - Ileus [Recovered/Resolved]
  - Peritonitis [Recovered/Resolved]

NARRATIVE: CASE EVENT DATE: 20131206
